FAERS Safety Report 10415963 (Version 2)
Quarter: 2014Q3

REPORT INFORMATION
  Report Type: Spontaneous
  Country: JP (occurrence: JP)
  Receive Date: 20140828
  Receipt Date: 20140925
  Transmission Date: 20150326
  Serious: Yes (Other)
  Sender: FDA-Public Use
  Company Number: JP-SA-2014SA112984

PATIENT
  Age: 65 Year
  Sex: Male
  Weight: 76 kg

DRUGS (25)
  1. FLUOROURACIL. [Suspect]
     Active Substance: FLUOROURACIL
     Indication: PANCREATIC CARCINOMA
     Route: 041
     Dates: start: 20140307, end: 20140307
  2. WARFARIN [Concomitant]
     Active Substance: WARFARIN
     Dates: start: 20140324, end: 20140525
  3. LEVOFOLINATE [Concomitant]
     Active Substance: LEVOLEUCOVORIN CALCIUM
     Indication: PANCREATIC CARCINOMA
     Dosage: LEVOFOLINATE FOR I.V. INFUSION (YAKULT) INJECTION
     Route: 065
     Dates: start: 20140307, end: 20140409
  4. LOPEMIN [Concomitant]
     Active Substance: LOPERAMIDE HYDROCHLORIDE
     Dates: start: 20140409, end: 20140508
  5. TRAZENTA [Concomitant]
     Active Substance: LINAGLIPTIN
     Dates: start: 20140116, end: 20140526
  6. ELPLAT [Suspect]
     Active Substance: OXALIPLATIN
     Indication: PANCREATIC CARCINOMA
     Dosage: ELPLAT I.V. INFUSION SOLUTION  INJECTION
     Route: 041
     Dates: start: 20140307, end: 20140307
  7. TOPOTECIN [Suspect]
     Active Substance: IRINOTECAN HYDROCHLORIDE
     Indication: PANCREATIC CARCINOMA
     Route: 040
  8. ELPLAT [Suspect]
     Active Substance: OXALIPLATIN
     Indication: PANCREATIC CARCINOMA
     Route: 041
     Dates: start: 20140325, end: 20140325
  9. FLUOROURACIL. [Suspect]
     Active Substance: FLUOROURACIL
     Indication: PANCREATIC CARCINOMA
     Route: 041
     Dates: start: 20140409, end: 20140409
  10. VITAMIN K1 [Concomitant]
     Active Substance: PHYTONADIONE
     Dates: start: 20140525
  11. SEIBULE [Concomitant]
     Active Substance: MIGLITOL
     Dates: start: 20140315, end: 20140526
  12. ELPLAT [Suspect]
     Active Substance: OXALIPLATIN
     Indication: PANCREATIC CARCINOMA
     Route: 041
     Dates: start: 20140409, end: 20140409
  13. TOPOTECIN [Suspect]
     Active Substance: IRINOTECAN HYDROCHLORIDE
     Indication: PANCREATIC CARCINOMA
     Route: 041
     Dates: start: 20140325, end: 20140325
  14. PARIET [Concomitant]
     Active Substance: RABEPRAZOLE SODIUM
     Dates: start: 20140403, end: 20140526
  15. LOXONIN [Concomitant]
     Active Substance: LOXOPROFEN SODIUM
     Dates: start: 20140508, end: 20140528
  16. MICARDIS [Concomitant]
     Active Substance: TELMISARTAN
     Dates: start: 20140112, end: 20140526
  17. NEUTROGIN [Concomitant]
     Active Substance: LENOGRASTIM
     Dates: start: 20140317, end: 20140322
  18. TENORMIN [Concomitant]
     Active Substance: ATENOLOL
     Dates: start: 20140112, end: 20140526
  19. FLUOROURACIL. [Suspect]
     Active Substance: FLUOROURACIL
     Indication: PANCREATIC CARCINOMA
     Route: 065
     Dates: start: 20140307, end: 20140307
  20. MORPHINE HYDROCHLORIDE [Concomitant]
     Active Substance: MORPHINE HYDROCHLORIDE
     Dates: start: 20140528
  21. TOPOTECIN [Suspect]
     Active Substance: IRINOTECAN HYDROCHLORIDE
     Indication: PANCREATIC CARCINOMA
     Route: 041
     Dates: start: 20140307, end: 20140307
  22. TOPOTECIN [Suspect]
     Active Substance: IRINOTECAN HYDROCHLORIDE
     Indication: PANCREATIC CARCINOMA
     Route: 041
     Dates: start: 20140409, end: 20140409
  23. FLUOROURACIL. [Suspect]
     Active Substance: FLUOROURACIL
     Indication: PANCREATIC CARCINOMA
     Route: 041
     Dates: start: 20140325, end: 20140325
  24. PARACETAMOL/TRAMADOL HYDROCHLORIDE [Concomitant]
     Active Substance: ACETAMINOPHEN\TRAMADOL HYDROCHLORIDE
     Dates: start: 20140512, end: 20140526
  25. AMLODIPINE BESILATE [Concomitant]
     Active Substance: AMLODIPINE BESYLATE
     Dates: start: 20140112, end: 20140526

REACTIONS (4)
  - Neutropenia [Recovered/Resolved]
  - Pneumoretroperitoneum [Not Recovered/Not Resolved]
  - Diarrhoea [Unknown]
  - Interstitial lung disease [Not Recovered/Not Resolved]

NARRATIVE: CASE EVENT DATE: 20140317
